FAERS Safety Report 9557757 (Version 1)
Quarter: 2013Q3

REPORT INFORMATION
  Report Type: Spontaneous
  Country: US (occurrence: None)
  Receive Date: 20130726
  Receipt Date: 20130726
  Transmission Date: 20140515
  Serious: Yes (Other)
  Sender: FDA-Public Use
  Company Number: UTC-027569

PATIENT
  Age: 63 Year
  Sex: Female

DRUGS (1)
  1. REMODULIN [Suspect]
     Indication: COR PULMONALE CHRONIC
     Dosage: 34.56 UG/KG (0.024 UG/KG, 1 IN 1 MIN) INTRAVENOUS DRIP
     Route: 041
     Dates: start: 20120508

REACTIONS (1)
  - Gastric haemorrhage [None]
